FAERS Safety Report 16154341 (Version 1)
Quarter: 2019Q2

REPORT INFORMATION
  Report Type: Spontaneous
  Country: NL (occurrence: NL)
  Receive Date: 20190403
  Receipt Date: 20190403
  Transmission Date: 20190711
  Serious: Yes (Hospitalization)
  Sender: FDA-Public Use
  Company Number: NL-TEVA-2019-NL-1032923

PATIENT
  Sex: Female

DRUGS (1)
  1. METFORMINE TABLET, 500 MG (MILLIGRAM) [Suspect]
     Active Substance: METFORMIN HYDROCHLORIDE
     Indication: DIABETES MELLITUS
     Dosage: 2X PER DAY 2
     Dates: start: 20180213, end: 20190211

REACTIONS (4)
  - Nausea [Recovered/Resolved]
  - Blood potassium abnormal [Recovered/Resolved]
  - Diarrhoea [Recovered/Resolved]
  - Therapeutic response unexpected [Recovered/Resolved]
